FAERS Safety Report 25959829 (Version 1)
Quarter: 2025Q4

REPORT INFORMATION
  Report Type: Spontaneous
  Country: US (occurrence: US)
  Receive Date: 20251026
  Receipt Date: 20251026
  Transmission Date: 20260118
  Serious: No
  Sender: SANOFI AVENTIS
  Company Number: US-SA-2025SA314691

PATIENT
  Age: 60 Year
  Sex: Male
  Weight: 110.91 kg

DRUGS (20)
  1. DUPIXENT [Suspect]
     Active Substance: DUPILUMAB
     Indication: Dermatitis atopic
     Dosage: 600 MG, 1X
     Route: 058
     Dates: start: 20251017, end: 20251017
  2. FLUAD NOS [Concomitant]
     Active Substance: INFLUENZA VIRUS VACCINE
  3. VTAMA [Concomitant]
     Active Substance: TAPINAROF
  4. UREA [Concomitant]
     Active Substance: UREA
  5. ACETAMINOPHEN\CODEINE PHOSPHATE [Concomitant]
     Active Substance: ACETAMINOPHEN\CODEINE PHOSPHATE
  6. TRIAMCINOLONE ACETONIDE [Concomitant]
     Active Substance: TRIAMCINOLONE ACETONIDE
  7. TOLNAFTATE [Concomitant]
     Active Substance: TOLNAFTATE
  8. TAMSULOSIN HYDROCHLORIDE [Concomitant]
     Active Substance: TAMSULOSIN HYDROCHLORIDE
  9. TADALAFIL [Concomitant]
     Active Substance: TADALAFIL
  10. OMEPRAZOLE [Concomitant]
     Active Substance: OMEPRAZOLE
  11. FLUCONAZOLE [Concomitant]
     Active Substance: FLUCONAZOLE
  12. HALOBETASOL PROPIONATE [Concomitant]
     Active Substance: HALOBETASOL PROPIONATE
  13. FLUOCINONIDE [Concomitant]
     Active Substance: FLUOCINONIDE
  14. FIORICET [Concomitant]
     Active Substance: ACETAMINOPHEN\BUTALBITAL\CAFFEINE
  15. FAMOTIDINE [Concomitant]
     Active Substance: FAMOTIDINE
  16. Comirnaty [Concomitant]
  17. DEVICE [Concomitant]
     Active Substance: DEVICE
  18. CLOBETASOL PROPIONATE [Concomitant]
     Active Substance: CLOBETASOL PROPIONATE
  19. BENZONATATE [Concomitant]
     Active Substance: BENZONATATE
  20. ATENOLOL [Concomitant]
     Active Substance: ATENOLOL

REACTIONS (2)
  - Injection site pain [Unknown]
  - Injection site swelling [Recovering/Resolving]

NARRATIVE: CASE EVENT DATE: 20251017
